FAERS Safety Report 20139989 (Version 6)
Quarter: 2024Q3

REPORT INFORMATION
  Report Type: Spontaneous
  Country: VN (occurrence: VN)
  Receive Date: 20211202
  Receipt Date: 20240930
  Transmission Date: 20241017
  Serious: Yes (Life-Threatening, Hospitalization, Other)
  Sender: SANOFI AVENTIS
  Company Number: VN-SA-SAC20211106000569

PATIENT
  Age: 1 Year
  Sex: Female
  Weight: 10 kg

DRUGS (3)
  1. MYOZYME [Suspect]
     Active Substance: ALGLUCOSIDASE ALFA
     Indication: Glycogen storage disease type II
     Dosage: 20 MG/KG
     Route: 041
     Dates: start: 20210625, end: 20211103
  2. CEFTRIAXONE [Concomitant]
     Active Substance: CEFTRIAXONE\CEFTRIAXONE SODIUM
     Indication: Infection
     Dosage: 100 MG/KG, QD
     Route: 042
     Dates: start: 20211108, end: 20211125
  3. NEXIUM I.V. [Concomitant]
     Active Substance: ESOMEPRAZOLE SODIUM
     Indication: Gastrooesophageal reflux disease
     Dosage: 1 MG/KG, QD
     Dates: start: 20211118

REACTIONS (6)
  - Central nervous system lesion [Recovered/Resolved]
  - Hypertonia [Not Recovered/Not Resolved]
  - Pulmonary embolism [Recovered/Resolved]
  - Cyanosis [Recovered/Resolved]
  - Cardiac arrest [Recovered/Resolved]
  - Wrong technique in product usage process [Unknown]

NARRATIVE: CASE EVENT DATE: 20211103
